FAERS Safety Report 6426932-0 (Version None)
Quarter: 2009Q4

REPORT INFORMATION
  Report Type: 
  Country: None (occurrence: None)
  Receive Date: 20091104
  Receipt Date: 20090730
  Transmission Date: 20100525
  Serious: No
  Sender: FDA-Public Use
  Company Number: US-BAYER-200916199BCC

PATIENT
  Sex: Female

DRUGS (1)
  1. ALEVE (CAPLET) [Suspect]
     Indication: ACCIDENTAL DRUG INTAKE BY CHILD
     Dosage: IT WAS UNKNOWN IF THE CHILD IINGESTED ANY CAPLETS
     Route: 048
     Dates: start: 20090729

REACTIONS (1)
  - NO ADVERSE EVENT [None]
